FAERS Safety Report 23977474 (Version 1)
Quarter: 2024Q2

REPORT INFORMATION
  Report Type: Spontaneous
  Country: US (occurrence: US)
  Receive Date: 20240614
  Receipt Date: 20240614
  Transmission Date: 20240716
  Serious: No
  Sender: FDA-Public Use
  Company Number: US-JNJFOC-20240625939

PATIENT
  Age: 41 Year
  Sex: Male

DRUGS (2)
  1. SPRAVATO [Suspect]
     Active Substance: ESKETAMINE
     Indication: Product used for unknown indication
     Dosage: FIRST DOSE: 29-MAY-2024?SECOND DOSE:31-MAY-2024
     Dates: start: 20240529
  2. SPRAVATO [Suspect]
     Active Substance: ESKETAMINE
     Dosage: THIRD DOSE: 05-JUN-2024(84MG) ?FOURTH DOSE: 07-JUN-2024(84MG)
     Dates: start: 20240605

REACTIONS (2)
  - Hypersensitivity [Unknown]
  - Product administration error [Unknown]
